FAERS Safety Report 9961378 (Version 1)
Quarter: 2014Q1

REPORT INFORMATION
  Report Type: Spontaneous
  Country: US (occurrence: US)
  Receive Date: 20140305
  Receipt Date: 20140305
  Transmission Date: 20141002
  Serious: Yes (Other)
  Sender: FDA-Public Use
  Company Number: US-RB-063391-14

PATIENT
  Age: 71 Year
  Sex: Male

DRUGS (1)
  1. MUCINEX FAST MAX CAPLETS COLD, FLU + SORE THROAT [Suspect]
     Indication: PRODUCT USED FOR UNKNOWN INDICATION
     Dosage: PATIENT TOOK LAST DOSE ON 24-FEB-2014.
     Route: 048
     Dates: start: 20140223

REACTIONS (1)
  - Epistaxis [Recovered/Resolved]
